FAERS Safety Report 6789227-1 (Version None)
Quarter: 2010Q2

REPORT INFORMATION
  Report Type: 
  Country: None (occurrence: None)
  Receive Date: 20100623
  Receipt Date: 20080923
  Transmission Date: 20101027
  Serious: No
  Sender: FDA-Public Use
  Company Number: US-PFIZER INC-2008053634

PATIENT
  Sex: Female
  Weight: 64.5 kg

DRUGS (10)
  1. AROMASIN [Suspect]
     Indication: BREAST CANCER
     Dates: end: 20080808
  2. MONTELUKAST SODIUM [Concomitant]
  3. ALLEGRA D 24 HOUR [Concomitant]
  4. PRILOSEC [Concomitant]
  5. LOVASTATIN [Concomitant]
  6. LORAZEPAM [Concomitant]
  7. LEXAPRO [Concomitant]
  8. ALL OTHER THERAPEUTIC PRODUCTS [Concomitant]
  9. PULMICORT [Concomitant]
     Route: 055
  10. PROVENTIL GENTLEHALER [Concomitant]

REACTIONS (1)
  - VISUAL IMPAIRMENT [None]
